FAERS Safety Report 12272612 (Version 1)
Quarter: 2016Q2

REPORT INFORMATION
  Report Type: Spontaneous
  Country: JP (occurrence: JP)
  Receive Date: 20160415
  Receipt Date: 20160415
  Transmission Date: 20160815
  Serious: Yes (Disabling)
  Sender: FDA-Public Use
  Company Number: JP-ABBVIE-16P-087-1563938-00

PATIENT
  Age: 51 Year
  Sex: Male

DRUGS (9)
  1. PROPOFOL. [Concomitant]
     Active Substance: PROPOFOL
     Indication: INDUCTION OF ANAESTHESIA
     Route: 042
     Dates: start: 20160120, end: 20160120
  2. ESLAX [Concomitant]
     Active Substance: ROCURONIUM BROMIDE
     Indication: HYPOTONIA
     Route: 042
     Dates: start: 20160120, end: 20160120
  3. FENTANYL CITRATE. [Concomitant]
     Active Substance: FENTANYL CITRATE
     Indication: ANALGESIC THERAPY
     Dosage: 0.2MG IV AND 30-50 MCG/HR IV DRIP
     Route: 042
     Dates: start: 20160120, end: 20160121
  4. ROPION [Concomitant]
     Active Substance: FLURBIPROFEN AXETIL
     Indication: ANALGESIC THERAPY
     Route: 042
     Dates: start: 20160120, end: 20160120
  5. BRIDION [Concomitant]
     Active Substance: SUGAMMADEX
     Indication: MUSCLE RELAXANT THERAPY
     Route: 041
     Dates: start: 20160120, end: 20160120
  6. POPSCAINE [Suspect]
     Active Substance: LEVOBUPIVACAINE HYDROCHLORIDE
     Indication: NERVE BLOCK
     Dosage: 0.75% INJ. 75 MG / 10 ML DILUTED TO 0.25%
     Route: 058
     Dates: start: 20160120, end: 20160120
  7. SEVOFRANE [Concomitant]
     Active Substance: SEVOFLURANE
     Indication: MAINTENANCE OF ANAESTHESIA
     Dosage: 1.5-3.0%
     Route: 055
     Dates: start: 20160120, end: 20160120
  8. ULTIVA [Concomitant]
     Active Substance: REMIFENTANIL HYDROCHLORIDE
     Indication: ANALGESIC THERAPY
     Dosage: 0.2-1.0 MG/HR
     Route: 041
     Dates: start: 20160120, end: 20160120
  9. DROLEPTAN [Concomitant]
     Active Substance: DROPERIDOL
     Indication: ANTIEMETIC SUPPORTIVE CARE
     Dosage: 50-80 MCG/HR
     Route: 041
     Dates: start: 20160120, end: 20160121

REACTIONS (1)
  - Femoral nerve palsy [Recovering/Resolving]

NARRATIVE: CASE EVENT DATE: 20160121
